FAERS Safety Report 6296326-X (Version None)
Quarter: 2009Q3

REPORT INFORMATION
  Report Type: 
  Country: None (occurrence: None)
  Receive Date: 20090804
  Receipt Date: 20090722
  Transmission Date: 20100115
  Serious: Yes (Other)
  Sender: FDA-Public Use
  Company Number: PHHY2009DE09159

PATIENT
  Sex: Female

DRUGS (5)
  1. COMBIPATCH [Suspect]
     Indication: OVARIAN CYST
     Dosage: UNK
     Route: 062
     Dates: start: 20090101
  2. COMBIPATCH [Suspect]
     Indication: MENOPAUSAL DEPRESSION
  3. COMBIPATCH [Suspect]
     Indication: SLEEP DISORDER
  4. ESTRADERM [Suspect]
     Indication: MENOPAUSAL DEPRESSION
     Dosage: 50 UG, BIW
     Route: 062
     Dates: start: 20030301
  5. ESTRADERM [Suspect]
     Indication: SLEEP DISORDER
     Dosage: 37.5 UG, BIW
     Route: 062
     Dates: start: 20060401, end: 20081001

REACTIONS (4)
  - ALOPECIA AREATA [None]
  - CONDITION AGGRAVATED [None]
  - FIBROMYALGIA [None]
  - OSTEOPOROSIS [None]
